FAERS Safety Report 21348845 (Version 1)
Quarter: 2022Q3

REPORT INFORMATION
  Report Type: Spontaneous
  Country: CN (occurrence: CN)
  Receive Date: 20220919
  Receipt Date: 20220919
  Transmission Date: 20221027
  Serious: Yes (Hospitalization, Other)
  Sender: FDA-Public Use
  Company Number: CN-NOVARTISPH-NVSC2022CN209715

PATIENT
  Age: 79 Year
  Sex: Male
  Weight: 50 kg

DRUGS (2)
  1. DICLOFENAC SODIUM [Suspect]
     Active Substance: DICLOFENAC SODIUM
     Indication: Pain
     Dosage: 1 DOSAGE FORM, BID
     Route: 048
     Dates: start: 20120301, end: 20220902
  2. ASPIRIN [Suspect]
     Active Substance: ASPIRIN
     Indication: Metabolic function test
     Dosage: 1 DOSAGE FORM, QD
     Route: 065
     Dates: start: 20180406, end: 20220902

REACTIONS (8)
  - Upper gastrointestinal haemorrhage [Recovering/Resolving]
  - Gastrointestinal sounds abnormal [Recovering/Resolving]
  - Discomfort [Recovering/Resolving]
  - Faeces discoloured [Recovering/Resolving]
  - Discoloured vomit [Recovering/Resolving]
  - Dizziness [Recovering/Resolving]
  - Haematemesis [Recovering/Resolving]
  - Liver disorder [Recovering/Resolving]

NARRATIVE: CASE EVENT DATE: 20220902
